FAERS Safety Report 4952942-6 (Version None)
Quarter: 2006Q1

REPORT INFORMATION
  Report Type: 
  Country: None (occurrence: None)
  Receive Date: 20060321
  Receipt Date: 20060317
  Transmission Date: 20060701
  Serious: Yes (Hospitalization)
  Sender: FDA-Public Use
  Company Number: OMPQ-NO-0603S-0177

PATIENT
  Age: 62 Year
  Sex: Male
  Weight: 78 kg

DRUGS (1)
  1. ACCUPAQUE (IOHEXOL) [Suspect]
     Dosage: 50 ML, SINGLE DOSE, EXTRAVASATION
     Dates: start: 20060112, end: 20060112

REACTIONS (5)
  - BLISTER [None]
  - COMPARTMENT SYNDROME [None]
  - EXTRAVASATION [None]
  - SKIN DISCOLOURATION [None]
  - SWELLING [None]
